FAERS Safety Report 23616235 (Version 1)
Quarter: 2024Q1

REPORT INFORMATION
  Report Type: Spontaneous
  Country: US (occurrence: None)
  Receive Date: 20240309
  Receipt Date: 20240309
  Transmission Date: 20240410
  Serious: Yes (Hospitalization)
  Sender: FDA-Public Use
  Company Number: None

PATIENT
  Age: 66 Year
  Sex: Female
  Weight: 62.6 kg

DRUGS (2)
  1. XELODA [Suspect]
     Active Substance: CAPECITABINE
     Dates: end: 20240221
  2. ELOXATIN [Suspect]
     Active Substance: OXALIPLATIN
     Dates: end: 20240216

REACTIONS (5)
  - Nausea [None]
  - Vomiting [None]
  - Fatigue [None]
  - Mental status changes [None]
  - Hyponatraemia [None]

NARRATIVE: CASE EVENT DATE: 20240218
